FAERS Safety Report 10589179 (Version 1)
Quarter: 2014Q4

REPORT INFORMATION
  Report Type: Report from Study
  Country: US (occurrence: US)
  Receive Date: 20141118
  Receipt Date: 20141118
  Transmission Date: 20150529
  Serious: No
  Sender: FDA-Public Use
  Company Number: US-AMGEN-USASL2014087618

PATIENT
  Age: 56 Year
  Sex: Male

DRUGS (1)
  1. ENBREL [Suspect]
     Active Substance: ETANERCEPT
     Indication: PSORIATIC ARTHROPATHY
     Dosage: 50 MG, QWK
     Route: 065
     Dates: start: 20141028

REACTIONS (5)
  - Painful respiration [Recovered/Resolved]
  - Fear [Recovered/Resolved]
  - Feeling cold [Recovered/Resolved]
  - Dyspnoea [Recovered/Resolved]
  - Stress [Recovered/Resolved]

NARRATIVE: CASE EVENT DATE: 20141107
